FAERS Safety Report 7808098-5 (Version None)
Quarter: 2011Q4

REPORT INFORMATION
  Report Type: 
  Country: None (occurrence: None)
  Receive Date: 20111011
  Receipt Date: 20110926
  Transmission Date: 20120403
  Serious: Yes (Hospitalization)
  Sender: FDA-Public Use
  Company Number: IT-ROCHE-1000354

PATIENT
  Sex: Female

DRUGS (6)
  1. ALENDRONATE SODIUM [Concomitant]
  2. MEDROL [Concomitant]
  3. ACTEMRA [Suspect]
     Indication: RHEUMATOID ARTHRITIS
     Route: 042
     Dates: start: 20110304, end: 20110707
  4. LANSOPRAZOLE [Concomitant]
  5. METHOTREXATE [Concomitant]
  6. FOLIN [Concomitant]

REACTIONS (1)
  - ACUTE RESPIRATORY FAILURE [None]
